FAERS Safety Report 7011992-9 (Version None)
Quarter: 2010Q3

REPORT INFORMATION
  Report Type: 
  Country: None (occurrence: None)
  Receive Date: 20100924
  Receipt Date: 20100913
  Transmission Date: 20110219
  Serious: Yes (Hospitalization, Other)
  Sender: FDA-Public Use
  Company Number: PHEH2008US02515

PATIENT
  Sex: Male
  Weight: 82.54 kg

DRUGS (52)
  1. AREDIA [Suspect]
     Dosage: 90 MG, QMO
     Route: 042
     Dates: start: 19950101, end: 20020426
  2. ZOMETA [Suspect]
     Dosage: 4MG/5ML EVERY 28 DAYS
     Dates: start: 20020628, end: 20051117
  3. HALDOL [Concomitant]
     Dosage: 3MG, DAILY
     Route: 048
  4. ZOLOFT [Concomitant]
     Dosage: 50MG, EVERY NIGHT AT BEDTIME
     Route: 048
  5. INTERFERON [Concomitant]
  6. RADIATION [Concomitant]
  7. CHEMOTHERAPEUTICS NOS [Concomitant]
  8. COGENTIN [Concomitant]
     Dosage: 4 MG, DAILY
     Route: 048
  9. ASPIRIN [Concomitant]
  10. TOPROL-XL [Concomitant]
     Dosage: 50MG, EVERY NIGHT AT BEDTIME
     Route: 048
  11. SINEMET [Concomitant]
  12. BENZTROPINE MESYLATE [Concomitant]
     Dosage: 2MG 2 PILLS DAILY
  13. FLOMAX [Concomitant]
     Dosage: 0.4MG DAILY
  14. ASPIRIN [Concomitant]
     Dosage: DAILY
  15. TRAZODONE HCL [Concomitant]
     Indication: DEPRESSION
  16. ASPIRIN [Concomitant]
     Dosage: 325MG, DAILY
     Route: 048
  17. PEN-VEE K [Concomitant]
     Dosage: 500 MG / TID
  18. VINCRISTINE + ADRIAMYCIN + DEXAMETHASONE [Concomitant]
  19. CIPROFLOXACIN [Concomitant]
     Dosage: 500 MG, BID
  20. CELEBREX [Concomitant]
  21. ZYPREXA [Concomitant]
  22. ZOFRAN [Concomitant]
  23. VIAGRA [Concomitant]
  24. FLONASE [Concomitant]
  25. DARVOCET-N 100 [Concomitant]
  26. FOLATE SODIUM [Concomitant]
  27. VITAMIN B COMPLEX CAP [Concomitant]
  28. VITAMIN E [Concomitant]
  29. CALCIUM [Concomitant]
  30. MAGNESIUM [Concomitant]
  31. ZINC [Concomitant]
  32. SHARK CARTILAGE [Concomitant]
  33. TESTOSTERONE [Concomitant]
  34. BENICAR [Concomitant]
  35. LISINOPRIL [Concomitant]
  36. ZYRTEC [Concomitant]
  37. NASONEX [Concomitant]
  38. DICLOFENAC SODIUM [Concomitant]
  39. LOVENOX [Concomitant]
     Dosage: 40 MG, QD
     Route: 058
  40. AMANTADINE [Concomitant]
     Dosage: 100 MG, TID
     Route: 048
  41. MERINAX [Concomitant]
  42. SERTRALINE HYDROCHLORIDE [Concomitant]
     Dosage: 1 DAILY
  43. KLOR-CON [Concomitant]
     Dosage: 1 (10 MEQ) DAILY
  44. CLONIDINE [Concomitant]
     Dosage: 2 DF (0.1 MG) AT BEDTIME
  45. ASCORBIC ACID [Concomitant]
  46. COD-LIVER OIL [Concomitant]
  47. GEODON [Concomitant]
     Dosage: UNK
     Dates: end: 20080821
  48. PREDNISONE TAB [Concomitant]
  49. ALPHA LIPOIC ACID [Concomitant]
     Dosage: 1 DF, TID
  50. MULTI-VITAMINS [Concomitant]
  51. VITAMIN D [Concomitant]
     Dosage: UNK
  52. SLEEP AID [Concomitant]

REACTIONS (100)
  - ACQUIRED OESOPHAGEAL WEB [None]
  - AMNESIA [None]
  - ANAEMIA [None]
  - ANXIETY [None]
  - ARTERIOSCLEROSIS [None]
  - ASTHENIA [None]
  - ATELECTASIS [None]
  - AUTONOMIC NEUROPATHY [None]
  - BACK PAIN [None]
  - BLEPHARITIS [None]
  - BONE DENSITY DECREASED [None]
  - BONE PAIN [None]
  - BREAST HYPERPLASIA [None]
  - BRONCHITIS [None]
  - CARDIAC DISORDER [None]
  - CARDIAC FAILURE CONGESTIVE [None]
  - CARDIOMYOPATHY [None]
  - CAROTID ARTERY STENOSIS [None]
  - CATARACT [None]
  - CHEST PAIN [None]
  - CHOLELITHIASIS [None]
  - COGNITIVE DISORDER [None]
  - CONSTIPATION [None]
  - DEBRIDEMENT [None]
  - DEEP VEIN THROMBOSIS [None]
  - DEHYDRATION [None]
  - DEMENTIA WITH LEWY BODIES [None]
  - DENTOFACIAL FUNCTIONAL DISORDER [None]
  - DERMATOPHYTOSIS [None]
  - DIARRHOEA [None]
  - DISTURBANCE IN ATTENTION [None]
  - DIZZINESS [None]
  - DYSPHAGIA [None]
  - DYSPNOEA [None]
  - ELECTROLYTE IMBALANCE [None]
  - ERECTILE DYSFUNCTION [None]
  - FALL [None]
  - FATIGUE [None]
  - GALLBLADDER OPERATION [None]
  - GASTRITIS [None]
  - GASTROOESOPHAGEAL REFLUX DISEASE [None]
  - GYNAECOMASTIA [None]
  - HALLUCINATION, VISUAL [None]
  - HEADACHE [None]
  - HEARING DISABILITY [None]
  - HERNIA [None]
  - HIP ARTHROPLASTY [None]
  - HYPERHIDROSIS [None]
  - HYPOACUSIS [None]
  - HYPOGONADISM [None]
  - HYPOMAGNESAEMIA [None]
  - HYPONATRAEMIA [None]
  - HYPOVOLAEMIA [None]
  - INAPPROPRIATE ANTIDIURETIC HORMONE SECRETION [None]
  - INFECTION [None]
  - INJURY [None]
  - IRRITABILITY [None]
  - JAW DISORDER [None]
  - KERATOCONJUNCTIVITIS SICCA [None]
  - LACUNAR INFARCTION [None]
  - LEFT VENTRICULAR DYSFUNCTION [None]
  - LOOSE TOOTH [None]
  - MITRAL VALVE INCOMPETENCE [None]
  - MUSCLE DISORDER [None]
  - MUSCLE STRAIN [None]
  - MUSCULOSKELETAL STIFFNESS [None]
  - NERVOUSNESS [None]
  - NODULE [None]
  - OLFACTORY NERVE DISORDER [None]
  - ORTHOSIS USER [None]
  - ORTHOSTATIC HYPOTENSION [None]
  - OSTEONECROSIS OF JAW [None]
  - OSTEOPOROSIS [None]
  - OSTEOSCLEROSIS [None]
  - PAIN [None]
  - PANCYTOPENIA [None]
  - PARKINSON'S DISEASE [None]
  - PHYSICAL DISABILITY [None]
  - PNEUMONIA [None]
  - POOR DENTAL CONDITION [None]
  - PRESYNCOPE [None]
  - PULMONARY HYPERTENSION [None]
  - PURULENT DISCHARGE [None]
  - RIB FRACTURE [None]
  - SOMNOLENCE [None]
  - SPINAL COLUMN STENOSIS [None]
  - SPINAL COMPRESSION FRACTURE [None]
  - SPINAL OSTEOARTHRITIS [None]
  - STEM CELL TRANSPLANT [None]
  - SWELLING [None]
  - TEMPORAL ARTERITIS [None]
  - TOOTH EXTRACTION [None]
  - TOOTH INFECTION [None]
  - TOURETTE'S DISORDER [None]
  - TREMOR [None]
  - URTICARIA [None]
  - VERTIGO [None]
  - VISUAL ACUITY REDUCED [None]
  - WOUND DEHISCENCE [None]
  - WOUND INFECTION [None]
